FAERS Safety Report 20783067 (Version 2)
Quarter: 2022Q2

REPORT INFORMATION
  Report Type: Spontaneous
  Country: FR (occurrence: FR)
  Receive Date: 20220504
  Receipt Date: 20220523
  Transmission Date: 20220721
  Serious: Yes (Congenital Anomaly)
  Sender: FDA-Public Use
  Company Number: None

PATIENT

DRUGS (12)
  1. ZOPICLONE [Suspect]
     Active Substance: ZOPICLONE
     Indication: Foetal exposure during pregnancy
     Dosage: UNK
     Route: 064
     Dates: start: 20211213
  2. OLANZAPINE [Suspect]
     Active Substance: OLANZAPINE
     Indication: Foetal exposure during pregnancy
     Dosage: UNK
     Route: 064
     Dates: start: 20211213
  3. ALCOHOL [Suspect]
     Active Substance: ALCOHOL
     Indication: Foetal exposure during pregnancy
     Dosage: UNK
     Route: 064
  4. COCAINE [Suspect]
     Active Substance: COCAINE
     Indication: Foetal exposure during pregnancy
     Dosage: UNK
     Route: 064
  5. LEVOMEPROMAZINE [Suspect]
     Active Substance: LEVOMEPROMAZINE
     Indication: Foetal exposure during pregnancy
     Dosage: UNK, MATERNAL EXPOSURE BEFORE PRGNANCY
     Route: 064
     Dates: start: 20211213
  6. TROPATEPINE HYDROCHLORIDE [Suspect]
     Active Substance: TROPATEPINE HYDROCHLORIDE
     Indication: Foetal exposure during pregnancy
     Dosage: UNK
     Route: 064
     Dates: start: 20211213
  7. HALDOL [Suspect]
     Active Substance: HALOPERIDOL
     Indication: Foetal exposure during pregnancy
     Dosage: UNK
     Route: 064
     Dates: start: 20211213
  8. ALCOHOL [Suspect]
     Active Substance: ALCOHOL
     Indication: Foetal exposure during pregnancy
     Dosage: UNK
     Route: 064
  9. TRIMEPRAZINE [Suspect]
     Active Substance: TRIMEPRAZINE
     Indication: Foetal exposure during pregnancy
     Dosage: UNK
     Route: 064
     Dates: start: 20211213
  10. VALIUM [Suspect]
     Active Substance: DIAZEPAM
     Indication: Foetal exposure during pregnancy
     Dosage: UNK
     Route: 064
     Dates: start: 20211213
  11. ZUCLOPENTHIXOL [Suspect]
     Active Substance: ZUCLOPENTHIXOL
     Indication: Foetal exposure during pregnancy
     Dosage: UNK,
     Route: 064
     Dates: start: 20211213
  12. ZUCLOPENTHIXOL [Suspect]
     Active Substance: ZUCLOPENTHIXOL
     Indication: Foetal exposure during pregnancy
     Dosage: UNK
     Route: 064
     Dates: start: 20211213

REACTIONS (2)
  - Abdominal wall anomaly [Not Recovered/Not Resolved]
  - Foetal exposure during pregnancy [Unknown]
